FAERS Safety Report 6872649-8 (Version None)
Quarter: 2010Q3

REPORT INFORMATION
  Report Type: 
  Country: None (occurrence: None)
  Receive Date: 20100723
  Receipt Date: 20081009
  Transmission Date: 20110219
  Serious: No
  Sender: FDA-Public Use
  Company Number: US-PFIZER INC-2008085592

PATIENT
  Age: 26 Year
  Sex: Male

DRUGS (5)
  1. CHANTIX [Suspect]
  2. LEXAPRO [Concomitant]
  3. PROTONIX [Concomitant]
  4. NAPROXEN [Concomitant]
  5. MEDROL [Concomitant]

REACTIONS (1)
  - DRUG SCREEN FALSE POSITIVE [None]
